FAERS Safety Report 5620032-5 (Version None)
Quarter: 2008Q1

REPORT INFORMATION
  Report Type: 
  Country: None (occurrence: None)
  Receive Date: 20080208
  Receipt Date: 20080129
  Transmission Date: 20080703
  Serious: Yes (Hospitalization)
  Sender: FDA-Public Use
  Company Number: FR-JNJFOC-20040803027

PATIENT
  Age: 83 Year
  Sex: Male
  Weight: 70 kg

DRUGS (8)
  1. HALDOL [Suspect]
     Indication: DEMENTIA
     Route: 048
  2. EXELON [Suspect]
     Route: 048
  3. EXELON [Suspect]
     Indication: DEMENTIA
     Route: 048
  4. LOXAPAC [Concomitant]
  5. EQUANIL [Concomitant]
  6. CLARITIN [Concomitant]
  7. ATARAX [Concomitant]
     Dosage: 3 TABLETS/DAY
  8. ATARAX [Concomitant]

REACTIONS (4)
  - DERMATITIS BULLOUS [None]
  - EOSINOPHILIA [None]
  - PRURITUS [None]
  - RASH MORBILLIFORM [None]
